FAERS Safety Report 8591045-9 (Version None)
Quarter: 2012Q3

REPORT INFORMATION
  Report Type: 
  Country: None (occurrence: None)
  Receive Date: 20120813
  Receipt Date: 20120807
  Transmission Date: 20120928
  Serious: Yes (Hospitalization)
  Sender: FDA-Public Use
  Company Number: BR-PFIZER INC-2012192019

PATIENT
  Age: 49 Year
  Sex: Female

DRUGS (1)
  1. TALIGLUCERASE ALFA [Suspect]
     Dosage: UNK
     Dates: end: 20120101

REACTIONS (1)
  - ANAPHYLACTIC SHOCK [None]
